FAERS Safety Report 4831278-8 (Version None)
Quarter: 2005Q4

REPORT INFORMATION
  Report Type: 
  Country: None (occurrence: None)
  Receive Date: 20051118
  Receipt Date: 20051109
  Transmission Date: 20060501
  Serious: Yes (Other)
  Sender: FDA-Public Use
  Company Number: CR-AVENTIS-200520037GDDC

PATIENT
  Age: 72 Year
  Sex: Female

DRUGS (5)
  1. ARAVA [Suspect]
     Indication: RHEUMATOID ARTHRITIS
     Route: 048
     Dates: start: 20050728, end: 20051001
  2. ENBREL [Concomitant]
     Indication: RHEUMATOID ARTHRITIS
     Dates: start: 20050530
  3. PANTECTA [Concomitant]
     Indication: GASTRITIS
     Dates: start: 20050530
  4. CELEBREX [Concomitant]
     Indication: RHEUMATOID ARTHRITIS
     Dates: start: 20050728
  5. ZOROXIN [Concomitant]
     Indication: BACTERAEMIA
     Dates: start: 20050530

REACTIONS (5)
  - INTERSTITIAL LUNG DISEASE [None]
  - PNEUMONITIS [None]
  - PO2 DECREASED [None]
  - PULMONARY HYPERTENSION [None]
  - RESPIRATORY FAILURE [None]
